FAERS Safety Report 5084858-1 (Version None)
Quarter: 2006Q3

REPORT INFORMATION
  Report Type: 
  Country: None (occurrence: None)
  Receive Date: 20060816
  Receipt Date: 20060502
  Transmission Date: 20061208
  Serious: Yes (Hospitalization)
  Sender: FDA-Public Use
  Company Number: 2006RR-03180

PATIENT
  Age: 59 Year
  Sex: Male

DRUGS (1)
  1. ENALAPRIL MALEATE [Suspect]
     Indication: HYPERTENSION
     Dosage: 10 MG, BID,

REACTIONS (8)
  - CONDITION AGGRAVATED [None]
  - ERYTHRODERMIC PSORIASIS [None]
  - HYPERKERATOSIS [None]
  - NAIL PITTING [None]
  - PROTEINURIA [None]
  - PSORIATIC ARTHROPATHY [None]
  - SKIN EXFOLIATION [None]
  - TUBULOINTERSTITIAL NEPHRITIS [None]
